FAERS Safety Report 25571488 (Version 2)
Quarter: 2025Q3

REPORT INFORMATION
  Report Type: Spontaneous
  Country: ZA (occurrence: ZA)
  Receive Date: 20250717
  Receipt Date: 20250821
  Transmission Date: 20251020
  Serious: No
  Sender: MYLAN
  Company Number: ZA-MYLANLABS-2025M1058383

PATIENT

DRUGS (3)
  1. EPIPEN [Suspect]
     Active Substance: EPINEPHRINE
     Indication: Product used for unknown indication
  2. EPIPEN [Suspect]
     Active Substance: EPINEPHRINE
  3. EPIPEN [Suspect]
     Active Substance: EPINEPHRINE

REACTIONS (3)
  - Device failure [Unknown]
  - Needle issue [Unknown]
  - Drug dose omission by device [Unknown]
